FAERS Safety Report 7494850-5 (Version None)
Quarter: 2011Q2

REPORT INFORMATION
  Report Type: 
  Country: None (occurrence: None)
  Receive Date: 20110520
  Receipt Date: 20081106
  Transmission Date: 20111010
  Serious: Yes (Other)
  Sender: FDA-Public Use
  Company Number: A0748813A

PATIENT
  Age: 46 Year
  Sex: Female
  Weight: 98 kg

DRUGS (5)
  1. LORTAB [Concomitant]
  2. LISINOPRIL AND HYDROCHLOROTHIAZIDE [Concomitant]
  3. IBUPROFEN [Concomitant]
  4. ALLI [Suspect]
     Route: 048
     Dates: start: 20071201
  5. PHENTERMINE [Concomitant]

REACTIONS (11)
  - RECTAL FISSURE [None]
  - CONSTIPATION [None]
  - FLATULENCE [None]
  - PRODUCT QUALITY ISSUE [None]
  - FAECALOMA [None]
  - RECTAL HAEMORRHAGE [None]
  - RECTAL DISCHARGE [None]
  - HAEMORRHOIDAL HAEMORRHAGE [None]
  - DRUG INEFFECTIVE [None]
  - ANAL HAEMORRHAGE [None]
  - FAECES HARD [None]
